FAERS Safety Report 9726860 (Version 1)
Quarter: 2013Q4

REPORT INFORMATION
  Report Type: Spontaneous
  Country: US (occurrence: US)
  Receive Date: 20131203
  Receipt Date: 20131203
  Transmission Date: 20140711
  Serious: No
  Sender: FDA-Public Use
  Company Number: US-NOVEN-13US006661

PATIENT
  Sex: Male

DRUGS (2)
  1. FENTANYL [Suspect]
     Indication: PAIN
     Dosage: 100 MCG/HR, 1/2 PATCH QOD
     Route: 062
     Dates: start: 201304
  2. FENTANYL [Suspect]
     Dosage: 50 UG, UNK
     Route: 062
     Dates: end: 201304

REACTIONS (3)
  - Drug administration error [Not Recovered/Not Resolved]
  - Drug prescribing error [Not Recovered/Not Resolved]
  - Product packaging quantity issue [Not Recovered/Not Resolved]
